FAERS Safety Report 4523346-5 (Version None)
Quarter: 2004Q4

REPORT INFORMATION
  Report Type: 
  Country: None (occurrence: None)
  Receive Date: 20041209
  Receipt Date: 20041209
  Transmission Date: 20050328
  Serious: Yes (Other)
  Sender: FDA-Public Use
  Company Number: None

PATIENT
  Age: 40 Year
  Sex: Female

DRUGS (3)
  1. GATIFLOXACIN [Suspect]
     Indication: PROPHYLAXIS
     Dosage: 400MG   X1   INTRAVENOU
     Route: 042
     Dates: start: 20040404, end: 20040404
  2. GATIFLOXACIN [Suspect]
     Indication: SURGERY
     Dosage: 400MG   X1   INTRAVENOU
     Route: 042
     Dates: start: 20040404, end: 20040404
  3. GATIFLOXACIN [Suspect]
     Dosage: 200MG  X1   INTRAVENOU
     Route: 042
     Dates: start: 20040405, end: 20040405

REACTIONS (2)
  - BLOOD GLUCOSE INCREASED [None]
  - HYPOGLYCAEMIA [None]
